FAERS Safety Report 10311335 (Version 1)
Quarter: 2014Q3

REPORT INFORMATION
  Report Type: Spontaneous
  Country: BR (occurrence: BR)
  Receive Date: 20140717
  Receipt Date: 20140717
  Transmission Date: 20150326
  Serious: Yes (Other)
  Sender: FDA-Public Use
  Company Number: BR-BRISTOL-MYERS SQUIBB COMPANY-21175104

PATIENT
  Age: 56 Year
  Sex: Female
  Weight: 80 kg

DRUGS (5)
  1. LEXOTAN [Concomitant]
     Active Substance: BROMAZEPAM
     Indication: PANIC DISORDER
     Route: 048
  2. LOSARTAN [Concomitant]
     Active Substance: LOSARTAN
     Route: 048
  3. GLIFAGE XR [Suspect]
     Active Substance: METFORMIN HYDROCHLORIDE
     Indication: GLUCOSE TOLERANCE IMPAIRED
     Route: 048
     Dates: start: 201301
  4. LEXOTAN [Concomitant]
     Active Substance: BROMAZEPAM
     Indication: BLOOD PRESSURE INCREASED
     Route: 048
  5. TENORETIC [Concomitant]
     Active Substance: ATENOLOL\CHLORTHALIDONE
     Indication: MITRAL VALVE PROLAPSE
     Dosage: 1DF=50/12.5 MG?2013-JUN14?2013-2013:PRN?JUN14:BID
     Route: 048
     Dates: start: 1998, end: 2011

REACTIONS (10)
  - Arrhythmia [Unknown]
  - Nausea [Unknown]
  - Hypertension [Unknown]
  - Tooth fracture [Unknown]
  - Gastrooesophageal reflux disease [Unknown]
  - Apnoea [Unknown]
  - Rhinitis [Unknown]
  - Panic disorder [Unknown]
  - Drug dose omission [Unknown]
  - Influenza [Unknown]

NARRATIVE: CASE EVENT DATE: 2013
